FAERS Safety Report 4369623-2 (Version None)
Quarter: 2004Q2

REPORT INFORMATION
  Report Type: 
  Country: None (occurrence: None)
  Receive Date: 20040528
  Receipt Date: 20040520
  Transmission Date: 20050107
  Serious: Yes (Death)
  Sender: FDA-Public Use
  Company Number: HQWYE067521MAY04

PATIENT
  Sex: Male

DRUGS (1)
  1. ZOSYN [Suspect]

REACTIONS (1)
  - BLOOD CREATININE INCREASED [None]
